FAERS Safety Report 20822753 (Version 1)
Quarter: 2022Q2

REPORT INFORMATION
  Report Type: Spontaneous
  Country: US (occurrence: US)
  Receive Date: 20220512
  Receipt Date: 20220512
  Transmission Date: 20220721
  Serious: Yes (Hospitalization)
  Sender: FDA-Public Use
  Company Number: US-PFIZER INC-202200638832

PATIENT
  Age: 16 Year
  Sex: Female
  Weight: 43.99 kg

DRUGS (5)
  1. SILDENAFIL CITRATE [Suspect]
     Active Substance: SILDENAFIL CITRATE
     Dosage: UNK
  2. AMLODIPINE BESYLATE [Suspect]
     Active Substance: AMLODIPINE BESYLATE
     Dosage: UNK
  3. REMODULIN [Suspect]
     Active Substance: TREPROSTINIL
     Indication: Pulmonary arterial hypertension
     Dosage: 29 NG/KG/MIN, CONTINUOUS
     Route: 058
     Dates: start: 20220225
  4. UPTRAVI [Suspect]
     Active Substance: SELEXIPAG
     Dosage: UNK
  5. AMBRISENTAN [Suspect]
     Active Substance: AMBRISENTAN
     Dosage: UNK

REACTIONS (1)
  - Catheterisation cardiac [Unknown]
